FAERS Safety Report 19304072 (Version 1)
Quarter: 2021Q2

REPORT INFORMATION
  Report Type: Spontaneous
  Country: SG (occurrence: SG)
  Receive Date: 20210525
  Receipt Date: 20210525
  Transmission Date: 20210717
  Serious: Yes (Other)
  Sender: FDA-Public Use
  Company Number: SG-ROCHE-2835892

PATIENT
  Sex: Male

DRUGS (1)
  1. XOLAIR [Suspect]
     Active Substance: OMALIZUMAB
     Indication: URTICARIA
     Dosage: 300 MG, QMO
     Route: 065

REACTIONS (3)
  - Drug ineffective [Unknown]
  - Urticaria [Not Recovered/Not Resolved]
  - Abdominal pain [Not Recovered/Not Resolved]
